FAERS Safety Report 20968080 (Version 1)
Quarter: 2022Q2

REPORT INFORMATION
  Report Type: Report from Study
  Country: IL (occurrence: IL)
  Receive Date: 20220616
  Receipt Date: 20220616
  Transmission Date: 20220721
  Serious: Yes (Other)
  Sender: FDA-Public Use
  Company Number: IL-NOVARTISPH-NVSC2021IL169293

PATIENT
  Age: 55 Year
  Sex: Male

DRUGS (1)
  1. MAYZENT [Suspect]
     Active Substance: SIPONIMOD
     Indication: Secondary progressive multiple sclerosis
     Dosage: 1 DOSAGE FORM, QD
     Route: 048
     Dates: start: 20210621, end: 20220512

REACTIONS (4)
  - Haematochezia [Recovered/Resolved]
  - Oral discomfort [Recovering/Resolving]
  - Ankle fracture [Unknown]
  - Product administration interrupted [Unknown]
